FAERS Safety Report 6532517-8 (Version None)
Quarter: 2009Q4

REPORT INFORMATION
  Report Type: 
  Country: None (occurrence: None)
  Receive Date: 20091214
  Receipt Date: 20091203
  Transmission Date: 20100525
  Serious: Yes (Death)
  Sender: FDA-Public Use
  Company Number: US-144895

PATIENT
  Sex: Female
  Weight: 75 kg

DRUGS (1)
  1. WINRHO SDF LIQUID [Suspect]
     Dosage: (80 PG/KG TOTAL)

REACTIONS (4)
  - ANAEMIA HAEMOLYTIC AUTOIMMUNE [None]
  - MEDICATION ERROR [None]
  - ORGAN FAILURE [None]
  - OVERDOSE [None]
